FAERS Safety Report 6523274-X (Version None)
Quarter: 2009Q4

REPORT INFORMATION
  Report Type: 
  Country: None (occurrence: None)
  Receive Date: 20091231
  Receipt Date: 20091221
  Transmission Date: 20100525
  Serious: Yes (Other)
  Sender: FDA-Public Use
  Company Number: US-JNJFOC-20091206120

PATIENT
  Sex: Female
  Weight: 54.43 kg

DRUGS (3)
  1. REMICADE [Suspect]
     Dosage: DOSE: 2 VIALS
     Route: 042
  2. REMICADE [Suspect]
     Dosage: DOSE: 2 VIALS
     Route: 042
  3. REMICADE [Suspect]
     Indication: RHEUMATOID ARTHRITIS
     Route: 042

REACTIONS (5)
  - ANGER [None]
  - CONFUSIONAL STATE [None]
  - FATIGUE [None]
  - MENTAL IMPAIRMENT [None]
  - STOMATITIS [None]
